FAERS Safety Report 26196353 (Version 1)
Quarter: 2025Q4

REPORT INFORMATION
  Report Type: Report from Study
  Country: GB (occurrence: GB)
  Receive Date: 20251224
  Receipt Date: 20251224
  Transmission Date: 20260117
  Serious: Yes (Hospitalization)
  Sender: ABBVIE
  Company Number: GB-ABBVIE-6602713

PATIENT
  Sex: Male

DRUGS (2)
  1. SKYRIZI [Suspect]
     Active Substance: RISANKIZUMAB-RZAA
     Indication: Psoriasis
     Dosage: FORM STRENGTH: SKYRIZI 150MG/1.0ML
     Route: 058
  2. SKYRIZI [Suspect]
     Active Substance: RISANKIZUMAB-RZAA
     Dosage: FORM STRENGTH: SKYRIZI 150MG/1.0ML
     Route: 058

REACTIONS (5)
  - Fall [Unknown]
  - Mobility decreased [Unknown]
  - Pulmonary fibrosis [Unknown]
  - Weight decreased [Unknown]
  - Psoriasis [Unknown]
